FAERS Safety Report 9778686 (Version 2)
Quarter: 2014Q1

REPORT INFORMATION
  Report Type: Spontaneous
  Country: GB (occurrence: None)
  Receive Date: 20131219
  Receipt Date: 20140102
  Transmission Date: 20141002
  Serious: Yes (Death)
  Sender: FDA-Public Use
  Company Number: AMAG201300244

PATIENT
  Age: 64 Year
  Sex: Male

DRUGS (2)
  1. RIENSO [Suspect]
     Indication: IMAGING PROCEDURE
     Dosage: 12.2 MI, (366 MG) SINGLE, INTRAVENOUS
     Route: 042
     Dates: start: 20130701, end: 20130701
  2. BUSCOPAN [Concomitant]

REACTIONS (1)
  - Aortic aneurysm rupture [None]
